FAERS Safety Report 7540277-7 (Version None)
Quarter: 2011Q2

REPORT INFORMATION
  Report Type: 
  Country: None (occurrence: None)
  Receive Date: 20110610
  Receipt Date: 20110601
  Transmission Date: 20111010
  Serious: Yes (Other)
  Sender: FDA-Public Use
  Company Number: PHHY2011US26481

PATIENT
  Sex: Female

DRUGS (2)
  1. GILENYA [Suspect]
     Indication: MULTIPLE SCLEROSIS
     Dosage: UNK UKN, UNK
     Route: 048
     Dates: start: 20110121
  2. RELPAX [Concomitant]
     Indication: MIGRAINE
     Dosage: 40 MG, PRN
     Route: 048
     Dates: start: 20110101

REACTIONS (5)
  - NAUSEA [None]
  - ARTHRALGIA [None]
  - MIGRAINE [None]
  - CONSTIPATION [None]
  - COUGH [None]
